FAERS Safety Report 7235507-5 (Version None)
Quarter: 2011Q1

REPORT INFORMATION
  Report Type: 
  Country: None (occurrence: None)
  Receive Date: 20110120
  Receipt Date: 20110117
  Transmission Date: 20110831
  Serious: Yes (Death, Other)
  Sender: FDA-Public Use
  Company Number: NL-MEDIMMUNE-MEDI-0011998

PATIENT
  Sex: Male
  Weight: 2.3 kg

DRUGS (2)
  1. URSODIOL [Concomitant]
     Indication: LIVER DISORDER
     Dates: start: 20100101
  2. SYNAGIS [Suspect]
     Route: 030
     Dates: start: 20101022, end: 20101118

REACTIONS (4)
  - POISONING [None]
  - ADVERSE EVENT [None]
  - GASTROINTESTINAL NECROSIS [None]
  - SURGERY [None]
